FAERS Safety Report 7628695-X (Version None)
Quarter: 2011Q3

REPORT INFORMATION
  Report Type: 
  Country: None (occurrence: None)
  Receive Date: 20110722
  Receipt Date: 20110712
  Transmission Date: 20111222
  Serious: Yes (Hospitalization)
  Sender: FDA-Public Use
  Company Number: US-JNJFOC-20110706897

PATIENT
  Sex: Female
  Weight: 61.69 kg

DRUGS (9)
  1. SENOKOT [Concomitant]
  2. REMICADE [Suspect]
     Indication: INFLAMMATORY BOWEL DISEASE
     Route: 042
     Dates: start: 20081110, end: 20100422
  3. TRILEPTAL [Concomitant]
  4. MESALAMINE [Concomitant]
     Route: 048
  5. MIDODRINE HYDROCHLORIDE [Concomitant]
  6. AMITIZA [Concomitant]
  7. PRILOSEC [Concomitant]
  8. KLONOPIN [Concomitant]
  9. FLORINEF [Concomitant]

REACTIONS (1)
  - ABDOMINAL PAIN [None]
